FAERS Safety Report 20912753 (Version 2)
Quarter: 2022Q2

REPORT INFORMATION
  Report Type: Spontaneous
  Country: FR (occurrence: FR)
  Receive Date: 20220603
  Receipt Date: 20220610
  Transmission Date: 20220721
  Serious: Yes (Other)
  Sender: FDA-Public Use
  Company Number: FR-JNJFOC-20220561415

PATIENT
  Age: 50 Year
  Sex: Female

DRUGS (3)
  1. SIMPONI [Suspect]
     Active Substance: GOLIMUMAB
     Indication: Product used for unknown indication
     Dosage: 50
     Route: 058
     Dates: start: 201707
  2. COVID-19 VACCINE [Concomitant]
     Route: 065
  3. INFLUENZA VIRUS VACCINE [Concomitant]
     Active Substance: INFLUENZA VIRUS VACCINE
     Route: 065

REACTIONS (10)
  - Crohn^s disease [Unknown]
  - General physical health deterioration [Unknown]
  - Gamma-glutamyltransferase increased [Not Recovered/Not Resolved]
  - White blood cell disorder [Unknown]
  - Renal disorder [Unknown]
  - Infection [Unknown]
  - COVID-19 [Unknown]
  - Product dose omission issue [Unknown]
  - Product quality issue [Unknown]
  - Inappropriate schedule of product administration [Unknown]

NARRATIVE: CASE EVENT DATE: 20211201
